FAERS Safety Report 13381111 (Version 3)
Quarter: 2017Q2

REPORT INFORMATION
  Report Type: Spontaneous
  Country: US (occurrence: US)
  Receive Date: 20170329
  Receipt Date: 20170503
  Transmission Date: 20170830
  Serious: No
  Sender: FDA-Public Use
  Company Number: US-PFIZER INC-2017129843

PATIENT
  Age: 52 Year
  Sex: Female

DRUGS (1)
  1. TETRACYCLINE HCL [Suspect]
     Active Substance: TETRACYCLINE HYDROCHLORIDE
     Indication: COUGH
     Dosage: UNK (NUMEROUS TIMES A DAY)

REACTIONS (1)
  - Tooth discolouration [Not Recovered/Not Resolved]
